FAERS Safety Report 14406935 (Version 1)
Quarter: 2018Q1

REPORT INFORMATION
  Report Type: Spontaneous
  Country: US (occurrence: US)
  Receive Date: 20180118
  Receipt Date: 20180118
  Transmission Date: 20180509
  Serious: Yes (Congenital Anomaly, Other)
  Sender: FDA-Public Use
  Company Number: US-TEVA-2018-US-846779

PATIENT
  Age: 29 Year
  Sex: Male

DRUGS (4)
  1. PROGESTERONE. [Concomitant]
     Active Substance: PROGESTERONE
     Indication: ANDROGEN REPLACEMENT THERAPY
     Route: 065
  2. ESTROGEN [Concomitant]
     Active Substance: ESTROGENS
     Indication: ANDROGEN REPLACEMENT THERAPY
     Route: 048
  3. ESTROGEN [Concomitant]
     Active Substance: ESTROGENS
     Indication: ANDROGEN REPLACEMENT THERAPY
     Dosage: WEEKLY INJECTION
     Route: 030
  4. SPIRONOLACTONE. [Suspect]
     Active Substance: SPIRONOLACTONE
     Indication: TRANSGENDER HORMONAL THERAPY
     Dosage: 100MG DAILY
     Route: 065

REACTIONS (1)
  - Spinal muscular atrophy [Unknown]
